FAERS Safety Report 9282131 (Version 3)
Quarter: 2013Q2

REPORT INFORMATION
  Report Type: Spontaneous
  Country: AU (occurrence: AU)
  Receive Date: 20130510
  Receipt Date: 20130607
  Transmission Date: 20140414
  Serious: Yes (Other)
  Sender: FDA-Public Use
  Company Number: AU-AMGEN-AUSSP2013032635

PATIENT
  Age: 49 Year
  Sex: Male

DRUGS (4)
  1. ENBREL [Suspect]
     Indication: PSORIASIS
     Dosage: UNK
     Route: 065
  2. ENBREL [Suspect]
     Indication: PSORIATIC ARTHROPATHY
     Dosage: UNK
  3. METHOTREXATE [Concomitant]
     Indication: PSORIASIS
     Dosage: UNK
  4. METHOTREXATE [Concomitant]
     Indication: PSORIATIC ARTHROPATHY
     Dosage: UNK

REACTIONS (9)
  - Acute HIV infection [Unknown]
  - Myopathy [Unknown]
  - Arthritis [Unknown]
  - Mouth ulceration [Recovered/Resolved]
  - Muscular weakness [Recovering/Resolving]
  - VIIth nerve paralysis [Recovering/Resolving]
  - CD4 lymphocytes decreased [Unknown]
  - Staphylococcal skin infection [Recovering/Resolving]
  - Infection [Unknown]
